FAERS Safety Report 4368079-3 (Version None)
Quarter: 2004Q2

REPORT INFORMATION
  Report Type: 
  Country: None (occurrence: None)
  Receive Date: 20040527
  Receipt Date: 20040211
  Transmission Date: 20050107
  Serious: No
  Sender: FDA-Public Use
  Company Number: 204691

PATIENT
  Age: 48 Year
  Sex: Female

DRUGS (2)
  1. RAPTIVA [Suspect]
     Indication: PSORIASIS
     Dosage: 0.5 MG, SINGLE, SUBCUTANEOUS; 0.7 MG, 1/WEEK, SUBCUTANEOUS
     Route: 058
     Dates: start: 20040102, end: 20040102
  2. RAPTIVA [Suspect]
     Indication: PSORIASIS
     Dosage: 0.5 MG, SINGLE, SUBCUTANEOUS; 0.7 MG, 1/WEEK, SUBCUTANEOUS
     Route: 058
     Dates: start: 20040101, end: 20040201

REACTIONS (1)
  - URTICARIA [None]
